FAERS Safety Report 16783483 (Version 1)
Quarter: 2019Q3

REPORT INFORMATION
  Report Type: Spontaneous
  Country: DE (occurrence: DE)
  Receive Date: 20190907
  Receipt Date: 20190907
  Transmission Date: 20191005
  Serious: Yes (Congenital Anomaly, Other)
  Sender: FDA-Public Use
  Company Number: DE-HETERO-HET2019DE01235

PATIENT
  Sex: Male
  Weight: 2.4 kg

DRUGS (2)
  1. LEVETIRACETAM. [Suspect]
     Active Substance: LEVETIRACETAM
     Indication: EPILEPSY
     Dosage: 2000 MG, QD
     Route: 064
     Dates: start: 20130716, end: 20131014
  2. MISOPROSTOL. [Concomitant]
     Active Substance: MISOPROSTOL
     Indication: LABOUR INDUCTION
     Dosage: UNK
     Route: 064
     Dates: start: 20140228, end: 20140228

REACTIONS (3)
  - Paternal exposure before pregnancy [Unknown]
  - Stillbirth [Unknown]
  - Congenital hydrocephalus [Not Recovered/Not Resolved]

NARRATIVE: CASE EVENT DATE: 20130716
